FAERS Safety Report 24441889 (Version 2)
Quarter: 2025Q2

REPORT INFORMATION
  Report Type: Spontaneous
  Country: CZ (occurrence: CZ)
  Receive Date: 20241016
  Receipt Date: 20250623
  Transmission Date: 20250717
  Serious: Yes (Hospitalization, Other)
  Sender: CELLTRION
  Company Number: CZ-009507513-2404CZE005464

PATIENT

DRUGS (8)
  1. INFLIXIMAB [Suspect]
     Active Substance: INFLIXIMAB
     Indication: Enterocolitis
     Route: 042
     Dates: start: 2023
  2. INFLIXIMAB [Suspect]
     Active Substance: INFLIXIMAB
     Indication: Toxicity to various agents
  3. CARBOPLATIN [Suspect]
     Active Substance: CARBOPLATIN
     Indication: Breast cancer
     Dates: start: 202304
  4. EPIRUBICIN [Suspect]
     Active Substance: EPIRUBICIN
     Indication: Triple negative breast cancer
     Dates: start: 2023, end: 20230831
  5. CYCLOPHOSPHAMIDE [Suspect]
     Active Substance: CYCLOPHOSPHAMIDE
     Indication: Triple negative breast cancer
     Dates: start: 2023, end: 20230831
  6. PACLITAXEL [Suspect]
     Active Substance: PACLITAXEL
     Indication: Breast cancer
     Dosage: EVERY WEEK, 80 MILLIGRAM/M2
     Dates: start: 202304
  7. KEYTRUDA [Suspect]
     Active Substance: PEMBROLIZUMAB
     Indication: Breast cancer
     Route: 042
     Dates: start: 20230419, end: 20230712
  8. AROMASIN [Suspect]
     Active Substance: EXEMESTANE
     Indication: Product used for unknown indication
     Dates: start: 202401, end: 202409

REACTIONS (18)
  - Immune-mediated enterocolitis [Unknown]
  - Immune-mediated enterocolitis [Unknown]
  - Immune-mediated enterocolitis [Unknown]
  - Colitis [Unknown]
  - Clostridium colitis [Unknown]
  - Neutropenia [Unknown]
  - Abnormal faeces [Unknown]
  - Malnutrition [Unknown]
  - Toxicity to various agents [Unknown]
  - Arthropathy [Unknown]
  - Ultrasound breast abnormal [Unknown]
  - Drug intolerance [Unknown]
  - Nausea [Unknown]
  - Upper respiratory tract infection [Unknown]
  - Fatigue [Unknown]
  - Weight decreased [Unknown]
  - Hypotension [Unknown]
  - Off label use [Unknown]

NARRATIVE: CASE EVENT DATE: 20230101
